FAERS Safety Report 24195716 (Version 1)
Quarter: 2024Q3

REPORT INFORMATION
  Report Type: Spontaneous
  Country: US (occurrence: US)
  Receive Date: 20240809
  Receipt Date: 20240809
  Transmission Date: 20241017
  Serious: Yes (Hospitalization)
  Sender: ABBVIE
  Company Number: US-ABBVIE-5865939

PATIENT
  Sex: Male

DRUGS (1)
  1. VRAYLAR [Suspect]
     Active Substance: CARIPRAZINE
     Indication: Schizophrenia
     Route: 048

REACTIONS (9)
  - Off label use [Unknown]
  - Dyskinesia [Unknown]
  - Lethargy [Unknown]
  - Salivary hypersecretion [Unknown]
  - Agitation [Unknown]
  - Freezing phenomenon [Unknown]
  - Memory impairment [Unknown]
  - Insomnia [Unknown]
  - Soliloquy [Unknown]

NARRATIVE: CASE EVENT DATE: 20240101
